APPROVED DRUG PRODUCT: AMINOPHYLLINE
Active Ingredient: AMINOPHYLLINE
Strength: 25MG/ML
Dosage Form/Route: INJECTABLE;INJECTION
Application: A088749 | Product #001
Applicant: SMITH AND NEPHEW SOLOPAK DIV SMITH AND NEPHEW
Approved: May 30, 1985 | RLD: No | RS: No | Type: DISCN